FAERS Safety Report 20303792 (Version 1)
Quarter: 2022Q1

REPORT INFORMATION
  Report Type: Spontaneous
  Country: US (occurrence: US)
  Receive Date: 20220106
  Receipt Date: 20220106
  Transmission Date: 20220423
  Serious: Yes (Death, Other)
  Sender: FDA-Public Use
  Company Number: US-AMGEN-USASP2021207142

PATIENT

DRUGS (6)
  1. BEVACIZUMAB [Suspect]
     Active Substance: BEVACIZUMAB
     Indication: Non-small cell lung cancer
     Dosage: UNK
     Route: 065
  2. AFATINIB [Concomitant]
     Active Substance: AFATINIB
     Dosage: UNK
  3. ATEZOLIZUMAB [Concomitant]
     Active Substance: ATEZOLIZUMAB
  4. CARBOPLATIN [Concomitant]
     Active Substance: CARBOPLATIN
  5. PACLITAXEL [Concomitant]
     Active Substance: PACLITAXEL
  6. OSIMERTINIB [Concomitant]
     Active Substance: OSIMERTINIB

REACTIONS (16)
  - Death [Fatal]
  - Non-small cell lung cancer [Unknown]
  - Leukopenia [Unknown]
  - Therapy partial responder [Unknown]
  - Pruritus [Unknown]
  - Dermatitis acneiform [Unknown]
  - Alanine aminotransferase increased [Unknown]
  - Aspartate aminotransferase increased [Unknown]
  - Hypoalbuminaemia [Unknown]
  - Paronychia [Unknown]
  - Anaemia [Unknown]
  - Decreased appetite [Unknown]
  - Diarrhoea [Unknown]
  - Weight decreased [Unknown]
  - Fatigue [Unknown]
  - Dry skin [Unknown]
